FAERS Safety Report 6828598 (Version 12)
Quarter: 2012Q4

REPORT INFORMATION
  Report Type: 
  Country: BR (occurrence: BR)
  Receive Date: 20081201
  Receipt Date: 20121003
  Transmission Date: 20130627
  Serious: Yes (Death, Life-Threatening, Hospitalization)
  Sender: FDA-Public Use
  Company Number: BR-PFIZER INC-2008100186

PATIENT
  Age: 78 Year
  Sex: Female
  Weight: 40 kg

DRUGS (9)
  1. EXEMESTANE [Suspect]
     Indication: BREAST CANCER
     Dosage: 25 mg, 1x/day
     Route: 048
     Dates: start: 20080805, end: 20081123
  2. EXEMESTANE [Suspect]
     Dosage: 25 mg, 1x/day
     Route: 048
     Dates: start: 20081126, end: 20081129
  3. FIGITUMUMAB [Suspect]
     Indication: BREAST CANCER
     Dosage: 20 mg/kg (800 mg), every 3 weeks
     Dates: start: 20080805
  4. SIMVASTATIN [Concomitant]
     Dosage: UNK
     Route: 048
     Dates: start: 200807
  5. ATENOLOL [Concomitant]
     Dosage: UNK
     Route: 048
     Dates: start: 200807
  6. METFORMIN [Concomitant]
     Dosage: UNK
     Route: 048
     Dates: start: 200807
  7. OMEPRAZOL [Concomitant]
     Dosage: UNK
     Route: 048
     Dates: start: 20080709
  8. ACETYLSALICYLIC ACID [Concomitant]
     Dosage: UNK
     Route: 048
     Dates: start: 200807, end: 20081123
  9. ISORDIL [Concomitant]
     Dosage: UNK
     Route: 048
     Dates: start: 200807

REACTIONS (13)
  - Urinary tract infection [Recovering/Resolving]
  - Convulsion [None]
  - Dizziness [None]
  - Loss of consciousness [None]
  - Pulmonary congestion [None]
  - Septic shock [None]
  - Cardiopulmonary failure [None]
  - Bronchopneumonia [Fatal]
  - Subdural haematoma [Fatal]
  - Fall [Recovered/Resolved]
  - Craniocerebral injury [Recovered/Resolved with Sequelae]
  - Cerebral haemorrhage [Recovered/Resolved with Sequelae]
  - Sensory loss [Not Recovered/Not Resolved]
